FAERS Safety Report 4591162-4 (Version None)
Quarter: 2005Q1

REPORT INFORMATION
  Report Type: 
  Country: None (occurrence: None)
  Receive Date: 20050223
  Receipt Date: 20050223
  Transmission Date: 20050727
  Serious: Yes (Life-Threatening, Hospitalization)
  Sender: FDA-Public Use
  Company Number: None

PATIENT
  Sex: Male

DRUGS (19)
  1. HEPARIN [Suspect]
     Indication: ANTICOAGULANT THERAPY
     Dosage: TITRATION  PROTOCOL  INTRAVENOUS
     Route: 042
     Dates: start: 20040902, end: 20040908
  2. APAP TAB [Concomitant]
  3. ALBUTEROL/IPRATROPIUM [Concomitant]
  4. AMIODARONE [Concomitant]
  5. ASPIRIN [Concomitant]
  6. CEFTAZIDIME [Concomitant]
  7. CIPROFLOXACIN [Concomitant]
  8. DEXAMETHASONE [Concomitant]
  9. DIGOXIN [Concomitant]
  10. FERROUS SULFATE TAB [Concomitant]
  11. FUROSEMIDE [Concomitant]
  12. HYDROXYCHLOROQUINE SULFATE [Concomitant]
  13. METOPROLOL [Concomitant]
  14. METRONIDAZOLE [Concomitant]
  15. MULTI-VITAMINS [Concomitant]
  16. OMEPRAZOLE [Concomitant]
  17. POTASSIUM CHLORIDE [Concomitant]
  18. TEMAZEPAM [Concomitant]
  19. WARFARIN [Concomitant]

REACTIONS (1)
  - THROMBOCYTOPENIA [None]
